FAERS Safety Report 5775706-2 (Version None)
Quarter: 2008Q2

REPORT INFORMATION
  Report Type: 
  Country: None (occurrence: None)
  Receive Date: 20080612
  Receipt Date: 20080529
  Transmission Date: 20081010
  Serious: Yes (Other)
  Sender: FDA-Public Use
  Company Number: STI-2008-00222

PATIENT
  Age: 20 Year
  Sex: Female

DRUGS (2)
  1. 520C CLARIPEL (HYDROQUINONE) (HYDROQUINONE) (4 %) [Suspect]
     Indication: SKIN HYPERPIGMENTATION
     Dosage: (IN THE MORNING) TOPICAL
     Route: 061
     Dates: start: 20071101
  2. SUNSCREEN SPF 40 (SUNSCREEN) (SUNSCREEN) [Concomitant]

REACTIONS (4)
  - CAUSTIC INJURY [None]
  - CONDITION AGGRAVATED [None]
  - DEFORMITY [None]
  - SKIN DISCOLOURATION [None]
